FAERS Safety Report 18558823 (Version 1)
Quarter: 2020Q4

REPORT INFORMATION
  Report Type: Spontaneous
  Country: US (occurrence: US)
  Receive Date: 20201125
  Receipt Date: 20201125
  Transmission Date: 20210114
  Serious: Yes (Hospitalization)
  Sender: FDA-Public Use
  Company Number: None

PATIENT
  Age: 66 Year
  Sex: Female
  Weight: 85.05 kg

DRUGS (14)
  1. NORCO 5-325MG ORAL [Concomitant]
  2. COLACE 100MG ORAL [Concomitant]
  3. PROCHLORPERAZONE 10MG ORAL [Concomitant]
  4. MIRALAX 17GM ORAL [Concomitant]
  5. ERGOCALCIFEROL 1.25MG ORAL [Concomitant]
  6. CAPECITABINE 500MG ORAL [Concomitant]
  7. LOPERAMIDE 2MG ORAL [Concomitant]
  8. DEXAMETHASONE 2MG, ORAL [Concomitant]
  9. MORPHINE SULFATE 15MG ORAL [Concomitant]
  10. ONDANSETRON 8MG ORAL [Concomitant]
  11. TUKYSA [Suspect]
     Active Substance: TUCATINIB
     Indication: NEOPLASM MALIGNANT
     Route: 048
  12. LOVENOX 80/0.8ML SUBCUTANEOUS [Concomitant]
  13. PREGABALIN 150MG ORAL [Concomitant]
  14. SENOKOT ORAL [Concomitant]

REACTIONS (2)
  - Pneumonia [None]
  - Encephalopathy [None]

NARRATIVE: CASE EVENT DATE: 20201125
